FAERS Safety Report 7951756-2 (Version None)
Quarter: 2011Q4

REPORT INFORMATION
  Report Type: 
  Country: None (occurrence: None)
  Receive Date: 20111201
  Receipt Date: 20111128
  Transmission Date: 20120403
  Serious: Yes (Other)
  Sender: FDA-Public Use
  Company Number: US-JNJFOC-20100804963

PATIENT
  Sex: Male

DRUGS (3)
  1. LEVAQUIN [Suspect]
     Indication: TESTICULAR SWELLING
     Route: 048
     Dates: start: 20060928, end: 20061018
  2. LEVAQUIN [Suspect]
     Indication: URINARY TRACT INFECTION
     Route: 048
     Dates: start: 20060928, end: 20061018
  3. CIPROFLOXACIN [Suspect]
     Indication: PRODUCT USED FOR UNKNOWN INDICATION

REACTIONS (6)
  - ARTHRITIS [None]
  - TENDON RUPTURE [None]
  - ADVERSE EVENT [None]
  - MENISCUS LESION [None]
  - PLANTAR FASCIITIS [None]
  - TENDONITIS [None]
